FAERS Safety Report 21486198 (Version 2)
Quarter: 2022Q4

REPORT INFORMATION
  Report Type: Spontaneous
  Country: GR (occurrence: GR)
  Receive Date: 20221020
  Receipt Date: 20221118
  Transmission Date: 20230113
  Serious: Yes (Other)
  Sender: FDA-Public Use
  Company Number: GR-JNJFOC-20221033998

PATIENT
  Age: 65 Year
  Sex: Male
  Weight: 82 kg

DRUGS (9)
  1. TREMFYA [Suspect]
     Active Substance: GUSELKUMAB
     Indication: Psoriasis
     Route: 065
  2. ALLOPURINOL [Concomitant]
     Active Substance: ALLOPURINOL
     Dosage: 300MG HALF
  3. EZETIMIBE\SIMVASTATIN [Concomitant]
     Active Substance: EZETIMIBE\SIMVASTATIN
     Dosage: (10+40)MG
  4. DILTIAZEM [Concomitant]
     Active Substance: DILTIAZEM
     Dosage: 300MG
  5. ASPIRIN [Concomitant]
     Active Substance: ASPIRIN
  6. TAMSULOSIN [Concomitant]
     Active Substance: TAMSULOSIN
  7. LINAGLIPTIN [Concomitant]
     Active Substance: LINAGLIPTIN
  8. INSULIN GLARGINE [Concomitant]
     Active Substance: INSULIN GLARGINE
  9. PAROXETINE [Concomitant]
     Active Substance: PAROXETINE
     Dosage: 20MG HALF

REACTIONS (1)
  - Erectile dysfunction [Not Recovered/Not Resolved]
